FAERS Safety Report 12737390 (Version 1)
Quarter: 2016Q3

REPORT INFORMATION
  Report Type: Spontaneous
  Country: FR (occurrence: FR)
  Receive Date: 20160912
  Receipt Date: 20160912
  Transmission Date: 20161109
  Serious: Yes (Other)
  Sender: FDA-Public Use
  Company Number: PHHY2016FR075348

PATIENT
  Age: 26 Year
  Sex: Female
  Weight: 47 kg

DRUGS (1)
  1. EXJADE [Suspect]
     Active Substance: DEFERASIROX
     Indication: HAEMOCHROMATOSIS
     Dosage: 1500 MG, QD
     Route: 048
     Dates: start: 201206, end: 20160329

REACTIONS (3)
  - Renal colic [Recovered/Resolved]
  - Blood creatinine increased [Recovered/Resolved]
  - Calculus urinary [Recovered/Resolved]

NARRATIVE: CASE EVENT DATE: 20160404
